FAERS Safety Report 11584892 (Version 2)
Quarter: 2016Q1

REPORT INFORMATION
  Report Type: Report from Study
  Country: IN (occurrence: IN)
  Receive Date: 20151001
  Receipt Date: 20160114
  Transmission Date: 20160525
  Serious: Yes (Other)
  Sender: FDA-Public Use
  Company Number: PHHY2015IN116937

PATIENT
  Age: 64 Year
  Sex: Male
  Weight: 56 kg

DRUGS (1)
  1. TASIGNA [Suspect]
     Active Substance: NILOTINIB
     Indication: CHRONIC MYELOID LEUKAEMIA
     Dosage: 400 MG, BID
     Route: 048
     Dates: start: 20140929

REACTIONS (4)
  - Lymphadenopathy [Not Recovered/Not Resolved]
  - Visual acuity reduced [Recovering/Resolving]
  - Fistula [Recovering/Resolving]
  - Chest pain [Not Recovered/Not Resolved]

NARRATIVE: CASE EVENT DATE: 201506
